FAERS Safety Report 17085324 (Version 4)
Quarter: 2025Q3

REPORT INFORMATION
  Report Type: Spontaneous
  Country: EU (occurrence: EU)
  Receive Date: 20191128
  Receipt Date: 20250710
  Transmission Date: 20251021
  Serious: Yes (Hospitalization, Disabling, Other)
  Sender: AUROBINDO
  Company Number: EU-BALDACCIPT-2019122

PATIENT
  Age: 46 Year
  Sex: Female

DRUGS (2)
  1. MONTELUKAST SODIUM [Suspect]
     Active Substance: MONTELUKAST SODIUM
     Indication: Urticaria
     Route: 048
  2. PREDNISOLONE [Suspect]
     Active Substance: PREDNISOLONE
     Indication: Urticaria
     Route: 065

REACTIONS (3)
  - Posterior reversible encephalopathy syndrome [Recovered/Resolved]
  - Hypertensive crisis [Recovered/Resolved]
  - Product use in unapproved indication [Unknown]
